FAERS Safety Report 7233009-3 (Version None)
Quarter: 2011Q1

REPORT INFORMATION
  Report Type: 
  Country: None (occurrence: None)
  Receive Date: 20110119
  Receipt Date: 20110114
  Transmission Date: 20110831
  Serious: Yes (Hospitalization)
  Sender: FDA-Public Use
  Company Number: IT-PFIZER INC-2011010803

PATIENT
  Age: 31 Year
  Sex: Female

DRUGS (7)
  1. SOMAVERT [Suspect]
     Indication: ACROMEGALY
     Dosage: 10 MG, 1X/DAY
     Route: 059
     Dates: start: 20101127, end: 20101207
  2. EUTIROX [Concomitant]
  3. DEURSIL [Concomitant]
  4. COLECALCIFEROL [Concomitant]
  5. CORTONE [Concomitant]
  6. LONGASTATINA [Concomitant]
  7. METFORMIN HYDROCHLORIDE [Concomitant]

REACTIONS (4)
  - MUSCULOSKELETAL PAIN [None]
  - RASH PAPULAR [None]
  - PYREXIA [None]
  - INJECTION SITE ERYTHEMA [None]
